FAERS Safety Report 5247868-7 (Version None)
Quarter: 2007Q1

REPORT INFORMATION
  Report Type: 
  Country: None (occurrence: None)
  Receive Date: 20070223
  Receipt Date: 20070207
  Transmission Date: 20070707
  Serious: Yes (Other)
  Sender: FDA-Public Use
  Company Number: PHBS2006BR11809

PATIENT
  Age: 37 Year
  Sex: Female
  Weight: 98 kg

DRUGS (3)
  1. FORASEQ [Suspect]
     Indication: ASTHMA
     Dosage: UNK, QD
  2. FER-IN-SOL [Concomitant]
     Indication: ANAEMIA OF PREGNANCY
     Dosage: UNK, BID
     Route: 048
  3. ISOXSUPRINE HYDROCHLORIDE [Concomitant]

REACTIONS (4)
  - ABORTION THREATENED [None]
  - ANAEMIA [None]
  - DRUG EXPOSURE DURING PREGNANCY [None]
  - NORMAL NEWBORN [None]
